FAERS Safety Report 10779584 (Version 2)
Quarter: 2015Q1

REPORT INFORMATION
  Report Type: Spontaneous
  Country: US (occurrence: US)
  Receive Date: 20150210
  Receipt Date: 20150210
  Transmission Date: 20150721
  Serious: No
  Sender: FDA-Public Use
  Company Number: US-GLAXOSMITHKLINE-A1074826A

PATIENT

DRUGS (3)
  1. VERAMYST [Suspect]
     Active Substance: FLUTICASONE FUROATE
     Indication: MULTIPLE ALLERGIES
     Dosage: 2 SPRAY EACH NOSTRIL DAILY
     Route: 045
  2. VENTOLIN [Suspect]
     Active Substance: ALBUTEROL SULFATE
     Indication: ASTHMA
     Dosage: 2 PUFF EVERY 4-6 HOURS PRN
     Route: 065
  3. VENTOLIN [Suspect]
     Active Substance: ALBUTEROL SULFATE
     Indication: CHRONIC OBSTRUCTIVE PULMONARY DISEASE

REACTIONS (1)
  - Incorrect product storage [Unknown]
